FAERS Safety Report 16123621 (Version 1)
Quarter: 2019Q1

REPORT INFORMATION
  Report Type: Report from Study
  Country: IT (occurrence: IT)
  Receive Date: 20190327
  Receipt Date: 20190327
  Transmission Date: 20190418
  Serious: Yes (Hospitalization)
  Sender: FDA-Public Use
  Company Number: IT-MYLANLABS-2019M1026603

PATIENT
  Age: 80 Year
  Sex: Female

DRUGS (5)
  1. EDOXABAN [Suspect]
     Active Substance: EDOXABAN TOSYLATE
     Indication: PRODUCT USED FOR UNKNOWN INDICATION
     Dosage: 1 DOSAGE FORM, TOTAL
     Route: 048
     Dates: start: 20180901, end: 20180901
  2. DILZENE [Suspect]
     Active Substance: DILTIAZEM HYDROCHLORIDE
     Indication: PRODUCT USED FOR UNKNOWN INDICATION
     Dosage: 120 MILLIGRAM, TOTAL
     Route: 048
     Dates: start: 20180901, end: 20180901
  3. BISOPROLOL [Suspect]
     Active Substance: BISOPROLOL
     Indication: PRODUCT USED FOR UNKNOWN INDICATION
     Dosage: 5 MILLIGRAM, TOTAL
     Route: 048
     Dates: start: 20180901, end: 20180901
  4. IRBESARTAN. [Suspect]
     Active Substance: IRBESARTAN
     Indication: PRODUCT USED FOR UNKNOWN INDICATION
     Dosage: 300 MILLIGRAM, TOTAL
     Route: 048
     Dates: start: 20180901, end: 20180901
  5. FUROSEMIDE. [Suspect]
     Active Substance: FUROSEMIDE
     Indication: PRODUCT USED FOR UNKNOWN INDICATION
     Dosage: 75 MILLIGRAM, TOTAL
     Route: 048
     Dates: start: 20180901, end: 20180901

REACTIONS (2)
  - Bradycardia [Recovering/Resolving]
  - Medication error [Recovering/Resolving]

NARRATIVE: CASE EVENT DATE: 20180901
